FAERS Safety Report 6175781-X (Version None)
Quarter: 2009Q2

REPORT INFORMATION
  Report Type: 
  Country: None (occurrence: None)
  Receive Date: 20090501
  Receipt Date: 20090428
  Transmission Date: 20091009
  Serious: Yes (Other)
  Sender: FDA-Public Use
  Company Number: GR-JNJFOC-20090406677

PATIENT
  Age: 70 Year
  Sex: Female

DRUGS (4)
  1. DAKTARIN ORAL GEL [Suspect]
     Route: 002
  2. DAKTARIN ORAL GEL [Suspect]
     Indication: ORAL FUNGAL INFECTION
     Route: 002
  3. ZOLOFT [Concomitant]
     Indication: INSOMNIA
  4. ZOLPIDEM TARTRATE [Concomitant]
     Indication: DEPRESSION

REACTIONS (1)
  - MOUTH ULCERATION [None]
